FAERS Safety Report 5598116-X (Version None)
Quarter: 2008Q1

REPORT INFORMATION
  Report Type: 
  Country: None (occurrence: None)
  Receive Date: 20080122
  Receipt Date: 20080114
  Transmission Date: 20080703
  Serious: Yes (Hospitalization, Other)
  Sender: FDA-Public Use
  Company Number: PHRM2008FR00584

PATIENT
  Age: 82 Year
  Sex: Female

DRUGS (11)
  1. TRILEPTAL [Suspect]
     Indication: EPILEPSY
     Route: 048
     Dates: start: 20030101, end: 20070701
  2. EFFEXOR [Suspect]
     Route: 048
     Dates: start: 20030101, end: 20070701
  3. HEMIGOXINE [Concomitant]
  4. ARIMIDEX [Concomitant]
     Dosage: 1 MG/DAY
  5. LYRICA [Concomitant]
     Dosage: 75 MG, BID
  6. LOXEN [Concomitant]
     Dosage: 50 MG, BID
  7. TRINIPATCH [Concomitant]
     Dosage: 10 UG/DAY
  8. LEVOTHYROX [Concomitant]
     Dosage: 125 UG/DAY
  9. DIFFU K [Concomitant]
  10. LASIX [Concomitant]
     Dosage: 20 MG/DAY
  11. PREVISCAN [Concomitant]

REACTIONS (11)
  - BASAL CELL CARCINOMA [None]
  - BREAST CANCER [None]
  - C-REACTIVE PROTEIN INCREASED [None]
  - CHOLESTASIS [None]
  - CONFUSIONAL STATE [None]
  - CYTOLYTIC HEPATITIS [None]
  - HAEMOGLOBIN DECREASED [None]
  - HYPOCALCAEMIA [None]
  - HYPONATRAEMIA [None]
  - INFLAMMATION [None]
  - IRON DEFICIENCY ANAEMIA [None]
